FAERS Safety Report 8990751 (Version 1)
Quarter: 2012Q4

REPORT INFORMATION
  Report Type: Spontaneous
  Country: US (occurrence: None)
  Receive Date: 20121226
  Receipt Date: 20121226
  Transmission Date: 20130627
  Serious: No
  Sender: FDA-Public Use
  Company Number: None

PATIENT
  Sex: Male

DRUGS (1)
  1. DIVALPROEX SODIUM [Suspect]

REACTIONS (7)
  - Haemoptysis [None]
  - Herpes simplex [None]
  - Oropharyngeal pain [None]
  - Dysphagia [None]
  - Dysuria [None]
  - Penile ulceration [None]
  - Skin exfoliation [None]
